FAERS Safety Report 6487709-3 (Version None)
Quarter: 2009Q4

REPORT INFORMATION
  Report Type: 
  Country: None (occurrence: None)
  Receive Date: 20091210
  Receipt Date: 20090916
  Transmission Date: 20100525
  Serious: No
  Sender: FDA-Public Use
  Company Number: US-AMGEN-KDL361408

PATIENT
  Sex: Female

DRUGS (15)
  1. ENBREL [Suspect]
     Indication: RHEUMATOID ARTHRITIS
     Route: 058
     Dates: start: 20090623
  2. PLAQUENIL [Concomitant]
  3. METHOTREXATE [Concomitant]
     Route: 048
     Dates: start: 20080801
  4. PLAVIX [Concomitant]
  5. ASPIRIN [Concomitant]
  6. NORCO [Concomitant]
  7. PREDNISONE [Concomitant]
  8. GABAPENTIN [Concomitant]
  9. METFORMIN HCL [Concomitant]
  10. LISINOPRIL [Concomitant]
  11. OMEPRAZOLE [Concomitant]
  12. SERTRALINE HCL [Concomitant]
  13. GLIPIZIDE [Concomitant]
  14. ACTOS [Concomitant]
  15. SIMVASTATIN [Concomitant]

REACTIONS (2)
  - ERYTHEMA [None]
  - SKIN IRRITATION [None]
